FAERS Safety Report 8887729 (Version 7)
Quarter: 2013Q3

REPORT INFORMATION
  Report Type: Spontaneous
  Country: US (occurrence: US)
  Receive Date: 20121106
  Receipt Date: 20130828
  Transmission Date: 20140515
  Serious: Yes (Hospitalization, Other)
  Sender: FDA-Public Use
  Company Number: US-MERCK-1211USA001622

PATIENT
  Sex: Female
  Weight: 59.41 kg

DRUGS (13)
  1. FOSAMAX [Suspect]
     Indication: OSTEOPOROSIS
     Dosage: 10 MG, QD
     Route: 048
     Dates: start: 199703
  2. FOSAMAX [Suspect]
     Dosage: 35 MG, UNK
     Route: 048
     Dates: start: 200205, end: 200710
  3. FOSAMAX [Suspect]
     Dosage: 70 MG, QW
     Route: 048
     Dates: start: 200205, end: 200710
  4. FOSAMAX [Suspect]
     Indication: OSTEOPOROSIS
     Route: 048
  5. FOSAMAX PLUS D [Suspect]
     Indication: OSTEOPOROSIS
     Dosage: 70 MG, UNK
     Route: 048
     Dates: start: 200710, end: 200907
  6. ASCORBIC ACID [Concomitant]
     Dosage: 1000 MG, QD
     Dates: start: 1976
  7. CHOLECALCIFEROL [Concomitant]
     Dosage: 2000 MG, QD
     Dates: start: 1976
  8. MIACALCIN [Concomitant]
     Indication: OSTEOPOROSIS
     Dosage: UNK
  9. VIOXX [Concomitant]
     Indication: OSTEOPOROSIS
     Dosage: 25 MG, QD
     Route: 048
     Dates: end: 200409
  10. CALCIUM (UNSPECIFIED) [Concomitant]
     Indication: OSTEOPOROSIS
     Dosage: 1200-1800 MG, QD
  11. VITAMIN D (UNSPECIFIED) [Concomitant]
     Indication: OSTEOPOROSIS
     Dosage: 400-1200 IU, DAILY
  12. TAMOXIFEN CITRATE [Concomitant]
     Indication: BREAST CANCER
     Dosage: 20 MG, QD
  13. SELECTIVE ESTROGEN RECEPTOR MODULATOR (UNSPECIFIED) [Concomitant]
     Dosage: UNK
     Dates: start: 1996, end: 2004

REACTIONS (109)
  - Femur fracture [Unknown]
  - Intramedullary rod insertion [Unknown]
  - Femur fracture [Unknown]
  - Intramedullary rod insertion [Unknown]
  - Fracture reduction [Unknown]
  - Open reduction of fracture [Unknown]
  - Myocardial infarction [Unknown]
  - Wrist surgery [Unknown]
  - Rib fracture [Unknown]
  - Haemothorax [Unknown]
  - Colectomy [Unknown]
  - Renal failure [Unknown]
  - Catheterisation cardiac [Unknown]
  - Catheterisation cardiac [Unknown]
  - Parathyroid gland operation [Unknown]
  - Parathyroidectomy [Unknown]
  - Hernia repair [Unknown]
  - Salpingo-oophorectomy bilateral [Unknown]
  - Uterine dilation and curettage [Unknown]
  - Femoral hernia repair [Unknown]
  - Coronary arterial stent insertion [Unknown]
  - Rectal prolapse repair [Unknown]
  - Cardiac pacemaker insertion [Unknown]
  - Loss of consciousness [Unknown]
  - Radius fracture [Unknown]
  - Radius fracture [Unknown]
  - Bone density decreased [Unknown]
  - Ulna fracture [Unknown]
  - Depression [Unknown]
  - Anxiety [Unknown]
  - Fall [Unknown]
  - Labile hypertension [Not Recovered/Not Resolved]
  - Hyperlipidaemia [Unknown]
  - Osteopenia [Unknown]
  - Body height decreased [Unknown]
  - Diverticulum [Unknown]
  - Coronary artery disease [Unknown]
  - Gastrointestinal disorder [Unknown]
  - Kyphosis [Unknown]
  - Coronary artery restenosis [Unknown]
  - Dyspnoea exertional [Unknown]
  - Spinal compression fracture [Unknown]
  - Mucosal dryness [Unknown]
  - Atrioventricular block first degree [Unknown]
  - Electrocardiogram Q wave abnormal [Unknown]
  - Anaemia [Not Recovered/Not Resolved]
  - Anaemia postoperative [Unknown]
  - Blood potassium decreased [Recovering/Resolving]
  - Blood magnesium decreased [Recovering/Resolving]
  - Transient ischaemic attack [Unknown]
  - Blister [Unknown]
  - Urinary tract infection [Unknown]
  - Rib fracture [Unknown]
  - Spinal fracture [Unknown]
  - Hypovitaminosis [Unknown]
  - Fracture [Unknown]
  - Cough [Recovered/Resolved]
  - Nocturia [Unknown]
  - Gastrointestinal disorder [Unknown]
  - Psoriasis [Unknown]
  - Hyperparathyroidism primary [Unknown]
  - Goitre [Unknown]
  - Onychomycosis [Unknown]
  - Benign neoplasm of thyroid gland [Unknown]
  - Fall [Unknown]
  - Ventricular tachycardia [Unknown]
  - Sick sinus syndrome [Unknown]
  - Psoriatic arthropathy [Unknown]
  - Insomnia [Unknown]
  - Fracture delayed union [Unknown]
  - Tetany [Unknown]
  - Small intestinal obstruction [Unknown]
  - Goitre [Unknown]
  - Rectal prolapse [Unknown]
  - Goitre [Unknown]
  - Osteosclerosis [Not Recovered/Not Resolved]
  - Rib fracture [Unknown]
  - Haemorrhoid operation [Unknown]
  - Cervicobrachial syndrome [Unknown]
  - Facial neuralgia [Unknown]
  - Glaucoma [Unknown]
  - Parathyroid tumour benign [Unknown]
  - Vestibular disorder [Unknown]
  - Insomnia [Unknown]
  - Cataract [Unknown]
  - Memory impairment [Unknown]
  - Thyroid neoplasm [Unknown]
  - Compression fracture [Unknown]
  - Sinus disorder [Unknown]
  - Mental disorder [Unknown]
  - Carotid bruit [Unknown]
  - Partial seizures [Unknown]
  - Erythema [Unknown]
  - Neck pain [Unknown]
  - Pain in jaw [Unknown]
  - Constipation [Not Recovered/Not Resolved]
  - Gastric ulcer [Unknown]
  - Back pain [Unknown]
  - Dizziness [Unknown]
  - Dizziness [Unknown]
  - Nausea [Unknown]
  - Vomiting [Unknown]
  - Abdominal discomfort [Unknown]
  - Musculoskeletal discomfort [Not Recovered/Not Resolved]
  - Drug ineffective [Unknown]
  - Gastrooesophageal reflux disease [Unknown]
  - Vertigo [Unknown]
  - Dizziness [Unknown]
  - Constipation [Recovering/Resolving]
